FAERS Safety Report 17731548 (Version 1)
Quarter: 2020Q2

REPORT INFORMATION
  Report Type: Report from Study
  Country: None (occurrence: BR)
  Receive Date: 20200430
  Receipt Date: 20200430
  Transmission Date: 20200714
  Serious: Yes (Other)
  Sender: FDA-Public Use
  Company Number: BR-ABBVIE-20P-020-3385660-00

PATIENT
  Sex: Female
  Weight: 98 kg

DRUGS (22)
  1. PANTOPRAZOLE [Concomitant]
     Active Substance: PANTOPRAZOLE
     Dosage: FORM STRENGTH 20MG
  2. DOMPERIDONE [Concomitant]
     Active Substance: DOMPERIDONE
     Indication: DYSPEPSIA
  3. FENPROPOREX [Suspect]
     Active Substance: FENPROPOREX DIPHENYLACETATE
     Indication: DECREASED APPETITE
     Route: 065
  4. DOMPERIDONE [Concomitant]
     Active Substance: DOMPERIDONE
     Indication: DYSPEPSIA
  5. ZINC. [Concomitant]
     Active Substance: ZINC
     Indication: CEREBRAL DISORDER
  6. DEPAKOTE ER [Suspect]
     Active Substance: DIVALPROEX SODIUM
     Indication: PETIT MAL EPILEPSY
     Dosage: FORM STRENGTH 250MG; ADMINISTERED IN THE MORNING; DAILY DOSE: 1 TABLET
     Route: 048
     Dates: start: 2004
  7. DEPAKOTE ER [Suspect]
     Active Substance: DIVALPROEX SODIUM
     Indication: CONFUSIONAL STATE
  8. PANTOPRAZOLE [Concomitant]
     Active Substance: PANTOPRAZOLE
     Indication: GASTRITIS
     Dosage: FORM STRENGTH 40MG, WHICH PATIENT REDUCED TO 20MG BY HER DECISION
  9. OSSOTRAT-D [Concomitant]
     Indication: OSTEOPOROSIS PROPHYLAXIS
     Dosage: ADMINISTERED AT LUNCH AND AT DINNER
     Route: 048
     Dates: start: 2003
  10. DOMPERIDONE [Concomitant]
     Active Substance: DOMPERIDONE
     Indication: GASTROOESOPHAGEAL REFLUX DISEASE
     Dosage: BREAKFAST, LUNCH AND DINNER, SINCE 3 MONTHS AGO
     Route: 048
  11. ARISTAB [Concomitant]
     Active Substance: ARIPIPRAZOLE
     Indication: BIPOLAR DISORDER
     Dosage: ADMINISTERED TOGETHER WITH DEPAKOTE ER
     Route: 048
     Dates: start: 20200304
  12. DEPAKOTE ER [Suspect]
     Active Substance: DIVALPROEX SODIUM
     Indication: PAIN
     Dosage: FORM STRENGTH 500MG; ADMINISTERED AT NIGHT; DAILY DOSE: 1 TABLET
     Route: 048
     Dates: start: 20200304
  13. FENPROPOREX [Suspect]
     Active Substance: FENPROPOREX DIPHENYLACETATE
     Indication: WEIGHT DECREASED
     Dosage: TREATMENT LASTED 6 MONTHS
     Route: 065
     Dates: start: 2004
  14. PANTOPRAZOLE [Concomitant]
     Active Substance: PANTOPRAZOLE
     Indication: GASTROOESOPHAGEAL REFLUX DISEASE
     Dosage: ADMINISTERED IN THE MORNING, FASTING; STARTED 10 YEARS AGO OR MORE
     Route: 048
  15. FOLIC ACID. [Concomitant]
     Active Substance: FOLIC ACID
     Indication: PRODUCT USED FOR UNKNOWN INDICATION
     Dosage: USED FOR 3 MONTHS
  16. MAGNESIUM CHLORIDE. [Concomitant]
     Active Substance: MAGNESIUM CHLORIDE
     Indication: PAIN
     Dosage: MORNING, AFTERNOON AND NIGHT, STARTED 1 MONTH AND 15 DAYS AGO, DAILY DOSE: 3 CAPSULES
     Route: 048
     Dates: start: 202003
  17. MAGNESIUM CHLORIDE. [Concomitant]
     Active Substance: MAGNESIUM CHLORIDE
     Indication: OSTEOARTHRITIS
  18. MAGNESIUM CHLORIDE. [Concomitant]
     Active Substance: MAGNESIUM CHLORIDE
     Indication: ARTHRITIS
  19. ADDERA D3 [Concomitant]
     Active Substance: CHOLECALCIFEROL
     Indication: OSTEOPOROSIS
     Route: 048
     Dates: start: 201910
  20. ZINC. [Concomitant]
     Active Substance: ZINC
     Indication: IMMUNE SYSTEM DISORDER
     Dosage: TAKEN IN THE MORNING, SINCE 8 MONTHS AGO
     Route: 048
     Dates: start: 201908
  21. LIVALO [Concomitant]
     Active Substance: PITAVASTATIN CALCIUM
     Indication: BLOOD CHOLESTEROL ABNORMAL
  22. CONDRES [Concomitant]
     Indication: PRODUCT USED FOR UNKNOWN INDICATION
     Dosage: PHYSICIAN PRESCRIBED 6 MONTHS,BUT WHEN PACKAGE FINISHES,PATIENT WILL DISCONTINUE TREATMENT

REACTIONS (16)
  - Thrombosed varicose vein [Unknown]
  - Tendon discomfort [Unknown]
  - Product use in unapproved indication [Unknown]
  - Morton^s neuralgia [Unknown]
  - Sleep apnoea syndrome [Not Recovered/Not Resolved]
  - Drug ineffective [Unknown]
  - Cerebral disorder [Not Recovered/Not Resolved]
  - Memory impairment [Unknown]
  - Therapeutic response unexpected [Unknown]
  - Finger deformity [Unknown]
  - Hepatic steatosis [Not Recovered/Not Resolved]
  - Blood pressure increased [Unknown]
  - Carpal tunnel syndrome [Unknown]
  - Product quality issue [Unknown]
  - Mammoplasty [Unknown]
  - Confusional state [Unknown]

NARRATIVE: CASE EVENT DATE: 2005
